FAERS Safety Report 6293513-1 (Version None)
Quarter: 2009Q3

REPORT INFORMATION
  Report Type: 
  Country: None (occurrence: None)
  Receive Date: 20090803
  Receipt Date: 20090721
  Transmission Date: 20100115
  Serious: Yes (Other)
  Sender: FDA-Public Use
  Company Number: GB-RANBAXY-2009RR-25884

PATIENT
  Age: 74 Year
  Sex: Female

DRUGS (5)
  1. SIMVASTATIN [Suspect]
     Indication: BLOOD CHOLESTEROL INCREASED
     Dosage: 20 MG, UNK
     Route: 048
     Dates: end: 20090620
  2. ASPIRIN [Concomitant]
     Indication: ANTIPLATELET THERAPY
     Dosage: 75 MG, QD
  3. CANDESARTAN CILEXETIL [Concomitant]
     Indication: HYPERTENSION
     Dosage: 12 MG, QD
     Route: 048
  4. CEPHALEXIN [Concomitant]
     Indication: URINARY TRACT INFECTION
     Dosage: 250 MG, TID
     Route: 048
     Dates: start: 20090603, end: 20090609
  5. PARACETAMOL [Concomitant]
     Indication: PAIN
     Dosage: 500 MG, UNK
     Route: 048

REACTIONS (2)
  - BLADDER CANCER [None]
  - BLOOD URINE PRESENT [None]
